FAERS Safety Report 9790763 (Version 1)
Quarter: 2013Q4

REPORT INFORMATION
  Report Type: Spontaneous
  Country: US (occurrence: US)
  Receive Date: 20131231
  Receipt Date: 20131231
  Transmission Date: 20140711
  Serious: Yes (Life-Threatening, Hospitalization, Other)
  Sender: FDA-Public Use
  Company Number: US-CELGENEUS-163-22393-13124523

PATIENT
  Age: 34 Year
  Sex: Female

DRUGS (6)
  1. ISTODAX [Suspect]
     Indication: MYCOSIS FUNGOIDES
     Route: 065
     Dates: start: 201304
  2. ISTODAX [Suspect]
     Route: 065
  3. DOXYCYCLINE [Concomitant]
     Indication: SOFT TISSUE INFECTION
     Dosage: 200 MILLIGRAM
     Route: 065
  4. METHYLPREDNISONE [Concomitant]
     Indication: PRODUCT USED FOR UNKNOWN INDICATION
     Route: 041
  5. FLUID [Concomitant]
     Indication: SEPSIS
     Route: 041
  6. ANTIMICROBIALS [Concomitant]
     Indication: SEPSIS
     Route: 041

REACTIONS (1)
  - Hypersensitivity [Recovered/Resolved]
